FAERS Safety Report 7152420-2 (Version None)
Quarter: 2010Q4

REPORT INFORMATION
  Report Type: 
  Country: None (occurrence: None)
  Receive Date: 20101208
  Receipt Date: 20101208
  Transmission Date: 20110411
  Serious: Yes (Hospitalization)
  Sender: FDA-Public Use
  Company Number: None

PATIENT
  Sex: Female

DRUGS (13)
  1. LETAIRIS [Suspect]
     Indication: PULMONARY ARTERIAL HYPERTENSION
     Dosage: LETAIRIS 5MG DAILY ORALLY
     Route: 048
     Dates: start: 20101103, end: 20101126
  2. AMLODIPINE [Concomitant]
  3. CIALIS [Concomitant]
  4. FUROSEMIDE [Concomitant]
  5. GABAPENTIN [Concomitant]
  6. ALENDRONATE [Concomitant]
  7. COMBIVENT [Concomitant]
  8. QVAR INHALER [Concomitant]
  9. WARFARIN [Concomitant]
  10. LORAZEPAM [Concomitant]
  11. DOCUSATE [Concomitant]
  12. HYDROMORPHONE [Concomitant]
  13. LETAIRIS [Concomitant]

REACTIONS (1)
  - PULMONARY EMBOLISM [None]
